FAERS Safety Report 9468652 (Version 1)
Quarter: 2013Q3

REPORT INFORMATION
  Report Type: Spontaneous
  Country: US (occurrence: None)
  Receive Date: 20130814
  Receipt Date: 20130814
  Transmission Date: 20140515
  Serious: Yes (Hospitalization)
  Sender: FDA-Public Use
  Company Number: 2013P1017348

PATIENT
  Age: 57 Year
  Sex: Female

DRUGS (13)
  1. FLUOXETINE [Suspect]
  2. MILNACIPRAN [Suspect]
     Indication: FIBROMYALGIA
  3. DOXEPIN [Suspect]
  4. TRAMADOL [Suspect]
  5. ALPRAZOLAM [Concomitant]
  6. ZOLPIDEM [Concomitant]
  7. ZOLEDRONIC ACID [Concomitant]
  8. ANASTROZOLE [Concomitant]
  9. RANITIDINE [Concomitant]
  10. LEVOCETIRIZINE [Concomitant]
  11. DOXAZOSIN [Concomitant]
  12. VITAMIN D [Concomitant]
  13. FERROUS GLUCONATE [Concomitant]

REACTIONS (12)
  - Incorrect dose administered [None]
  - Rash morbilliform [None]
  - Toxicity to various agents [None]
  - Diarrhoea [None]
  - Nausea [None]
  - Restlessness [None]
  - Dizziness [None]
  - Myalgia [None]
  - Blood pressure increased [None]
  - Sinus tachycardia [None]
  - Serum serotonin increased [None]
  - Body temperature increased [None]
